FAERS Safety Report 7942225-4 (Version None)
Quarter: 2011Q4

REPORT INFORMATION
  Report Type: 
  Country: None (occurrence: None)
  Receive Date: 20111122
  Receipt Date: 20111111
  Transmission Date: 20120403
  Serious: Yes (Hospitalization)
  Sender: FDA-Public Use
  Company Number: 2011MA016553

PATIENT
  Age: 70 Year
  Sex: Male

DRUGS (5)
  1. MABTHERA [Concomitant]
  2. FLUDARABINE PHOSPHATE [Suspect]
     Indication: CHRONIC LEUKAEMIA
     Dosage: 43 MG;IV
     Route: 042
     Dates: start: 20101025, end: 20110323
  3. BACTRIM [Suspect]
     Indication: ANTIFUNGAL PROPHYLAXIS
     Dosage: 160 MG;QOD;PO
     Route: 048
     Dates: start: 20101025, end: 20110715
  4. CYCLOPHOSPHAMIDE [Concomitant]
  5. VIREAD [Concomitant]

REACTIONS (5)
  - DERMATITIS [None]
  - ECZEMA [None]
  - HYPERSENSITIVITY [None]
  - DERMATOSIS [None]
  - EOSINOPHILIC CELLULITIS [None]
